FAERS Safety Report 10071645 (Version 2)
Quarter: 2014Q2

REPORT INFORMATION
  Report Type: Spontaneous
  Country: CA (occurrence: CA)
  Receive Date: 20140411
  Receipt Date: 20140411
  Transmission Date: 20141212
  Serious: Yes (Other)
  Sender: FDA-Public Use
  Company Number: CA-AMGEN-CANSP2013078156

PATIENT
  Age: 50 Year
  Sex: Female

DRUGS (4)
  1. ENBREL [Suspect]
     Indication: RHEUMATOID ARTHRITIS
     Dosage: 50 MG, UNK
     Route: 065
     Dates: start: 20130205
  2. DOMPERIDONE [Concomitant]
     Dosage: UNK
  3. CYMBALTA [Concomitant]
     Dosage: UNK
  4. PREDNISONE [Concomitant]
     Dosage: 15 MG, UNK

REACTIONS (9)
  - Intestinal perforation [Unknown]
  - Kidney infection [Unknown]
  - White blood cell count increased [Unknown]
  - Pancreatic disorder [Unknown]
  - Blood glucose increased [Unknown]
  - Liver function test abnormal [Unknown]
  - Blood urine present [Unknown]
  - Rheumatoid arthritis [Unknown]
  - Herpes zoster [Unknown]
